FAERS Safety Report 5674090-2 (Version None)
Quarter: 2008Q1

REPORT INFORMATION
  Report Type: 
  Country: None (occurrence: None)
  Receive Date: 20080320
  Receipt Date: 20080310
  Transmission Date: 20080703
  Serious: Yes (Other)
  Sender: FDA-Public Use
  Company Number: IE-JNJFOC-20080301840

PATIENT
  Age: 35 Year
  Sex: Female

DRUGS (2)
  1. TARIVID [Suspect]
     Indication: URINARY TRACT INFECTION
     Route: 048
  2. YASMIN [Concomitant]
     Route: 065

REACTIONS (1)
  - PAIN IN EXTREMITY [None]
